FAERS Safety Report 10177361 (Version 1)
Quarter: 2014Q2

REPORT INFORMATION
  Report Type: Spontaneous
  Country: CN (occurrence: CN)
  Receive Date: 20140516
  Receipt Date: 20140516
  Transmission Date: 20141212
  Serious: Yes (Other)
  Sender: FDA-Public Use
  Company Number: CN-BAYER-2014-068262

PATIENT
  Age: 47 Year
  Sex: Male
  Weight: 90 kg

DRUGS (6)
  1. GLUCOBAY [Suspect]
     Indication: DIABETES MELLITUS
     Dosage: 50 MG, TID
     Route: 048
     Dates: start: 20130619, end: 20130704
  2. METFORMIN HYDROCHLORIDE [Suspect]
     Indication: DIABETES MELLITUS
     Dosage: 0.25 G, TID
     Route: 048
     Dates: start: 20130619, end: 20130704
  3. CEFUROXIME SODIUM [Suspect]
     Dosage: 1.5 G, BID
     Route: 042
     Dates: start: 20130619, end: 20130625
  4. RIBAVIRIN [Suspect]
     Indication: UPPER RESPIRATORY TRACT INFECTION
     Dosage: 0.5 G, QD
     Route: 042
     Dates: start: 20130618, end: 20130619
  5. PROBUCOL [Concomitant]
     Indication: LIPIDS ABNORMAL
     Dosage: 0.25 G, BID
     Route: 048
     Dates: start: 201306
  6. ATORVASTATIN [Concomitant]
     Indication: LIPIDS ABNORMAL
     Dosage: 20 MG, UNK
     Route: 048
     Dates: start: 201306

REACTIONS (1)
  - Deafness neurosensory [Not Recovered/Not Resolved]
